FAERS Safety Report 9547745 (Version 1)
Quarter: 2013Q2

REPORT INFORMATION
  Report Type: Spontaneous
  Country: US (occurrence: None)
  Receive Date: 20130606
  Receipt Date: 20130606
  Transmission Date: 20140414
  Serious: No
  Sender: FDA-Public Use
  Company Number: 1302USA013665

PATIENT
  Age: 85 Year
  Sex: Female

DRUGS (2)
  1. ZIOPTAN [Suspect]
     Indication: GLAUCOMA
     Dosage: 1 GTT, HS, 04, OPHTHALMIC
     Dates: start: 20120918
  2. COSOPT [Suspect]
     Indication: GLAUCOMA
     Dosage: 1 GTT, HS, 04, OPHTHALMIC
     Dates: start: 20120918

REACTIONS (4)
  - Drug dose omission [None]
  - Incorrect dose administered [None]
  - Product quality issue [None]
  - No adverse event [None]
